FAERS Safety Report 5613440-X (Version None)
Quarter: 2008Q1

REPORT INFORMATION
  Report Type: 
  Country: None (occurrence: None)
  Receive Date: 20080129
  Receipt Date: 20071002
  Transmission Date: 20080703
  Serious: Yes (Hospitalization, Other)
  Sender: FDA-Public Use
  Company Number: MK-6022184

PATIENT
  Age: 83 Year
  Sex: Male

DRUGS (1)
  1. METFORMIN HCL [Suspect]
     Indication: DIABETES MELLITUS
     Dosage: 1; ORAL
     Route: 048

REACTIONS (4)
  - ABDOMINAL PAIN [None]
  - HYPOTENSION [None]
  - LACTIC ACIDOSIS [None]
  - RENAL FAILURE ACUTE [None]
